FAERS Safety Report 19944990 (Version 2)
Quarter: 2021Q4

REPORT INFORMATION
  Report Type: Spontaneous
  Country: US (occurrence: US)
  Receive Date: 20211011
  Receipt Date: 20211028
  Transmission Date: 20220303
  Serious: No
  Sender: FDA-Public Use
  Company Number: US-BLUEPRINT MEDICINES CORPORATION-SP-US-2021-001658

PATIENT
  Age: 83 Year
  Sex: Female

DRUGS (2)
  1. AYVAKIT [Suspect]
     Active Substance: AVAPRITINIB
     Indication: Systemic mastocytosis
     Route: 048
     Dates: start: 20210827
  2. AYVAKIT [Suspect]
     Active Substance: AVAPRITINIB
     Route: 048
     Dates: start: 20210827

REACTIONS (8)
  - Oedema peripheral [Unknown]
  - Blood pressure diastolic decreased [Unknown]
  - Peripheral coldness [Unknown]
  - Haemoglobin decreased [Unknown]
  - Oedema [Unknown]
  - Eyelid oedema [Unknown]
  - Face oedema [Unknown]
  - Renal disorder [Unknown]
